FAERS Safety Report 26151348 (Version 1)
Quarter: 2025Q4

REPORT INFORMATION
  Report Type: Spontaneous
  Country: JP (occurrence: JP)
  Receive Date: 20251212
  Receipt Date: 20251212
  Transmission Date: 20260118
  Serious: Yes (Death, Hospitalization, Other)
  Sender: BRISTOL-MYERS SQUIBB COMPANY
  Company Number: JP-ONO-2025JP022623

PATIENT
  Age: 80 Year
  Sex: Male
  Weight: 57 kg

DRUGS (1)
  1. OPDIVO [Suspect]
     Active Substance: NIVOLUMAB
     Indication: Squamous cell carcinoma of skin
     Dosage: 240 MG
     Route: 041
     Dates: start: 20251020, end: 20251020

REACTIONS (2)
  - Immune-mediated lung disease [Fatal]
  - Off label use [Unknown]

NARRATIVE: CASE EVENT DATE: 20251020
